FAERS Safety Report 5727831-X (Version None)
Quarter: 2008Q2

REPORT INFORMATION
  Report Type: 
  Country: None (occurrence: None)
  Receive Date: 20080505
  Receipt Date: 20080421
  Transmission Date: 20081010
  Serious: Yes (Hospitalization, Other)
  Sender: FDA-Public Use
  Company Number: US-ELI_LILLY_AND_COMPANY-US200804005179

PATIENT
  Sex: Female

DRUGS (4)
  1. FORTEO [Suspect]
     Indication: OSTEOPOROSIS
     Dosage: UNK, UNK
     Dates: start: 20070401, end: 20080101
  2. FORTEO [Suspect]
     Dates: start: 20080101
  3. VITAMIN D [Concomitant]
  4. CITRACAL [Concomitant]

REACTIONS (1)
  - MITRAL VALVE PROLAPSE [None]
